FAERS Safety Report 23859713 (Version 1)
Quarter: 2024Q2

REPORT INFORMATION
  Report Type: Spontaneous
  Country: JP (occurrence: JP)
  Receive Date: 20240515
  Receipt Date: 20240515
  Transmission Date: 20240716
  Serious: Yes (Death, Other)
  Sender: FDA-Public Use
  Company Number: JP-KYOWAKIRIN-2024KK010896

PATIENT
  Age: 8 Decade
  Sex: Male

DRUGS (1)
  1. ROMIPLOSTIM [Suspect]
     Active Substance: ROMIPLOSTIM
     Indication: Immune thrombocytopenia
     Dosage: 50 MICROGRAM, ADMINISTERED TO THE PATIENT TWICE
     Route: 058
     Dates: start: 20240427, end: 20240504

REACTIONS (1)
  - Sepsis [Fatal]
